FAERS Safety Report 20520688 (Version 1)
Quarter: 2022Q1

REPORT INFORMATION
  Report Type: Spontaneous
  Country: US (occurrence: US)
  Receive Date: 20220225
  Receipt Date: 20220225
  Transmission Date: 20220424
  Serious: Yes (Hospitalization)
  Sender: FDA-Public Use
  Company Number: US-BAUSCH-BL-2022-004903

PATIENT
  Age: 73 Year
  Sex: Female
  Weight: 63.560 kg

DRUGS (1)
  1. ATIVAN [Suspect]
     Active Substance: LORAZEPAM
     Indication: Agitation
     Dosage: AS DIRECTED
     Route: 048

REACTIONS (2)
  - Musculoskeletal disorder [Unknown]
  - Depressed level of consciousness [Unknown]
